FAERS Safety Report 5242156-7 (Version None)
Quarter: 2007Q1

REPORT INFORMATION
  Report Type: 
  Country: None (occurrence: None)
  Receive Date: 20070213
  Receipt Date: 20070206
  Transmission Date: 20070707
  Serious: Yes (Other)
  Sender: FDA-Public Use
  Company Number: CHPA2007US02180

PATIENT
  Age: 79 Year
  Sex: Male
  Weight: 79.4 kg

DRUGS (1)
  1. TRANSDERM SCOP [Suspect]
     Indication: MOTION SICKNESS
     Dosage: TRANSDERMAL
     Route: 062

REACTIONS (3)
  - APPLICATION SITE REACTION [None]
  - BOWEN'S DISEASE [None]
  - SKIN CANCER [None]
